FAERS Safety Report 18604923 (Version 1)
Quarter: 2020Q4

REPORT INFORMATION
  Report Type: Report from Study
  Country: DE (occurrence: DE)
  Receive Date: 20201211
  Receipt Date: 20201211
  Transmission Date: 20210114
  Serious: Yes (Other)
  Sender: FDA-Public Use
  Company Number: DE-MYLANLABS-2020M1046357

PATIENT
  Sex: Female
  Weight: 75 kg

DRUGS (6)
  1. AVASTIN [Suspect]
     Active Substance: BEVACIZUMAB
     Indication: PRODUCT USED FOR UNKNOWN INDICATION
     Dosage: UNK
     Route: 065
  2. ABEMACICLIB [Concomitant]
     Active Substance: ABEMACICLIB
     Indication: BREAST CANCER
     Dosage: 100 MILLIGRAM, QD
     Route: 048
     Dates: start: 20200817, end: 20200824
  3. ANASTROZOLE. [Suspect]
     Active Substance: ANASTROZOLE
     Indication: BREAST CANCER
     Dosage: 1 MG, QD
     Route: 048
     Dates: start: 20190129, end: 20190813
  4. ANASTROZOLE. [Suspect]
     Active Substance: ANASTROZOLE
     Dosage: 1 MG, QD
     Route: 048
     Dates: start: 20190813
  5. KISQALI [Suspect]
     Active Substance: RIBOCICLIB
     Indication: BREAST CANCER
     Dosage: 200 MG, QD
     Route: 048
     Dates: start: 20190129, end: 20190131
  6. KISQALI [Suspect]
     Active Substance: RIBOCICLIB
     Dosage: 400 MG, (SCHEME 21 DAYS INTAKE, 7 DAYS PAUSE)
     Route: 048
     Dates: start: 20190201, end: 20190716

REACTIONS (9)
  - Hypertension [Not Recovered/Not Resolved]
  - Depressed mood [Recovered/Resolved]
  - Product use issue [Recovered/Resolved]
  - Sleep disorder [Recovered/Resolved]
  - Skin fissures [Not Recovered/Not Resolved]
  - Dizziness [Recovered/Resolved]
  - Fatigue [Not Recovered/Not Resolved]
  - Breast pain [Recovered/Resolved]
  - Oedema peripheral [Not Recovered/Not Resolved]

NARRATIVE: CASE EVENT DATE: 20190129
